FAERS Safety Report 7282980-2 (Version None)
Quarter: 2011Q1

REPORT INFORMATION
  Report Type: 
  Country: None (occurrence: None)
  Receive Date: 20110209
  Receipt Date: 20110203
  Transmission Date: 20110831
  Serious: Yes (Death)
  Sender: FDA-Public Use
  Company Number: DK-JNJFOC-20110201293

PATIENT
  Age: 34 Year
  Sex: Male

DRUGS (2)
  1. CONCERTA [Suspect]
     Indication: ATTENTION DEFICIT/HYPERACTIVITY DISORDER
     Dosage: CONCERTA 18 MG DEPOTTABLETTER
     Route: 048
  2. CONCERTA [Suspect]
     Indication: RESTLESSNESS
     Dosage: CONCERTA 18 MG DEPOTTABLETTER
     Route: 048

REACTIONS (1)
  - SUDDEN DEATH [None]
